FAERS Safety Report 19690789 (Version 5)
Quarter: 2022Q1

REPORT INFORMATION
  Report Type: Spontaneous
  Country: US (occurrence: US)
  Receive Date: 20210812
  Receipt Date: 20220218
  Transmission Date: 20220423
  Serious: Yes (Other)
  Sender: FDA-Public Use
  Company Number: US-PFIZER INC-2021894847

PATIENT
  Age: 66 Year
  Sex: Male

DRUGS (1)
  1. MEKTOVI [Suspect]
     Active Substance: BINIMETINIB
     Indication: Metastatic salivary gland cancer
     Dosage: 15 MG, 2X/DAY

REACTIONS (6)
  - Neuropathy peripheral [Unknown]
  - Visual impairment [Unknown]
  - Off label use [Unknown]
  - Dyspnoea exertional [Unknown]
  - Respiratory rate decreased [Unknown]
  - Echocardiogram abnormal [Unknown]
